FAERS Safety Report 8344354-2 (Version None)
Quarter: 2012Q2

REPORT INFORMATION
  Report Type: 
  Country: None (occurrence: None)
  Receive Date: 20120508
  Receipt Date: 20120427
  Transmission Date: 20120825
  Serious: Yes (Other)
  Sender: FDA-Public Use
  Company Number: US-CUBIST-2012S1000405

PATIENT
  Age: 77 Year
  Sex: Male

DRUGS (18)
  1. CUBICIN [Suspect]
  2. CUBICIN [Suspect]
     Indication: DEVICE RELATED INFECTION
  3. CUBICIN [Suspect]
  4. OXACILLIN [Concomitant]
     Indication: PRODUCT USED FOR UNKNOWN INDICATION
     Dosage: DOSE UNIT:U
  5. CUBICIN [Suspect]
  6. CUBICIN [Suspect]
  7. CUBICIN [Suspect]
  8. CUBICIN [Suspect]
     Indication: STAPHYLOCOCCAL INFECTION
  9. CUBICIN [Suspect]
  10. CUBICIN [Suspect]
  11. CUBICIN [Suspect]
  12. CUBICIN [Suspect]
  13. CUBICIN [Suspect]
  14. CUBICIN [Suspect]
  15. CUBICIN [Suspect]
  16. CUBICIN [Suspect]
     Indication: ARTHRITIS INFECTIVE
  17. LINEZOLID [Concomitant]
     Indication: STAPHYLOCOCCAL INFECTION
  18. VANCOMYCIN [Concomitant]
     Indication: STAPHYLOCOCCAL INFECTION
     Dosage: DOSE UNIT:U

REACTIONS (4)
  - ARTHRALGIA [None]
  - ANTIMICROBIAL SUSCEPTIBILITY TEST RESISTANT [None]
  - JOINT SWELLING [None]
  - BLOOD CREATINE PHOSPHOKINASE INCREASED [None]
